FAERS Safety Report 7431747-0 (Version None)
Quarter: 2011Q1

REPORT INFORMATION
  Report Type: 
  Country: None (occurrence: None)
  Receive Date: 20110302
  Receipt Date: 20101119
  Transmission Date: 20110831
  Serious: No
  Sender: FDA-Public Use
  Company Number: 022331

PATIENT
  Sex: Female
  Weight: 73.9 kg

DRUGS (5)
  1. PROVENTIL-HFA [Concomitant]
  2. METHOTREXATE [Concomitant]
  3. QVAR 40 [Concomitant]
  4. CIMZIA [Suspect]
     Indication: CROHN'S DISEASE
     Dosage: 400 MG 1X/MONTH SUBCUTANEOUS
     Route: 058
     Dates: start: 20101002
  5. ACETAMINOPHEN [Concomitant]

REACTIONS (2)
  - ARTHRALGIA [None]
  - DRY SKIN [None]
